FAERS Safety Report 9495647 (Version 1)
Quarter: 2013Q3

REPORT INFORMATION
  Report Type: Spontaneous
  Country: CA (occurrence: CA)
  Receive Date: 20130903
  Receipt Date: 20130903
  Transmission Date: 20140515
  Serious: Yes (Other)
  Sender: FDA-Public Use
  Company Number: CHPA2013CA013585

PATIENT
  Age: 72 Year
  Sex: Female

DRUGS (3)
  1. GAS-X ULTRA STRENGTH [Suspect]
     Indication: FLATULENCE
     Dosage: 1 DF, UNK
     Route: 048
     Dates: start: 2013, end: 201308
  2. GAS-X UNKNOWN THIN STRIP [Suspect]
     Indication: FLATULENCE
     Dosage: 1 DF, UNK
     Route: 048
     Dates: end: 20130828
  3. VITAMIN B12 [Concomitant]
     Dosage: UNK, UNK

REACTIONS (3)
  - Constipation [Recovered/Resolved]
  - Abnormal faeces [Recovered/Resolved]
  - Underdose [Unknown]
